FAERS Safety Report 10274921 (Version 2)
Quarter: 2014Q3

REPORT INFORMATION
  Report Type: Report from Study
  Country: FR (occurrence: FR)
  Receive Date: 20140702
  Receipt Date: 20140804
  Transmission Date: 20150326
  Serious: Yes (Hospitalization)
  Sender: FDA-Public Use
  Company Number: FR-BRISTOL-MYERS SQUIBB COMPANY-21087663

PATIENT
  Age: 15 Year
  Sex: Female

DRUGS (5)
  1. TRANSIPEG [Concomitant]
     Active Substance: POLYETHYLENE GLYCOL 3350
     Dosage: POWDER
     Route: 048
  2. ALPRAZOLAM. [Concomitant]
     Active Substance: ALPRAZOLAM
     Route: 048
     Dates: start: 20140210
  3. TERCIAN [Concomitant]
     Active Substance: CYAMEMAZINE
     Dosage: TERCIAN 40MG/ML
     Route: 048
     Dates: start: 20140306, end: 20140306
  4. ABILIFY DISCMELT [Suspect]
     Active Substance: ARIPIPRAZOLE
     Route: 048
     Dates: start: 20140213
  5. DAFALGAN CAPS 500 MG [Concomitant]
     Route: 048

REACTIONS (3)
  - Off label use [Unknown]
  - Extrapyramidal disorder [Recovered/Resolved]
  - Abnormal behaviour [Unknown]

NARRATIVE: CASE EVENT DATE: 201403
